FAERS Safety Report 6588746-0 (Version None)
Quarter: 2010Q1

REPORT INFORMATION
  Report Type: 
  Country: None (occurrence: None)
  Receive Date: 20100212
  Receipt Date: 20100128
  Transmission Date: 20100710
  Serious: Yes (Death, Life-Threatening, Other)
  Sender: FDA-Public Use
  Company Number: 006493

PATIENT
  Age: 65 Year
  Sex: Female

DRUGS (2)
  1. ISOSORBIDE DINITRATE [Suspect]
     Dosage: 2 SPRAYS, BOTH 1.25 MG ISOSORBIDE DINITRATE IN ETHANOL REPEATED FOUR MINUTES LATER
  2. NIFEDIPINE [Suspect]
     Dosage: 20 MG, 10 MG AND A SECOND DOSE 10 MINUTES LATER

REACTIONS (7)
  - BLOOD PRESSURE INCREASED [None]
  - CEREBRAL HAEMORRHAGE [None]
  - EXTENSOR PLANTAR RESPONSE [None]
  - FALL [None]
  - LARYNGEAL OEDEMA [None]
  - LOSS OF CONSCIOUSNESS [None]
  - STRIDOR [None]
